FAERS Safety Report 15728647 (Version 1)
Quarter: 2018Q4

REPORT INFORMATION
  Report Type: Other
  Country: NL (occurrence: NL)
  Receive Date: 20181217
  Receipt Date: 20181217
  Transmission Date: 20190205
  Serious: Yes (Other)
  Sender: FDA-Public Use
  Company Number: NL-APOTEX-2018AP027247

PATIENT

DRUGS (3)
  1. IMATINIB. [Suspect]
     Active Substance: IMATINIB MESYLATE
     Indication: CHRONIC MYELOID LEUKAEMIA
     Dosage: 400 MG, QD
     Route: 065
  2. CYTARABINE. [Suspect]
     Active Substance: CYTARABINE
     Indication: ACUTE MYELOID LEUKAEMIA
     Route: 065
  3. DAUNORUBICIN [Suspect]
     Active Substance: DAUNORUBICIN
     Indication: ACUTE MYELOID LEUKAEMIA
     Route: 065

REACTIONS (2)
  - Acute myeloid leukaemia recurrent [Not Recovered/Not Resolved]
  - Acute myeloid leukaemia [Recovering/Resolving]

NARRATIVE: CASE EVENT DATE: 201311
